FAERS Safety Report 9125361 (Version 1)
Quarter: 2013Q1

REPORT INFORMATION
  Report Type: Spontaneous
  Country: US (occurrence: US)
  Receive Date: 20130117
  Receipt Date: 20130117
  Transmission Date: 20140127
  Serious: Yes (Death)
  Sender: FDA-Public Use
  Company Number: US-BRISTOL-MYERS SQUIBB COMPANY-17016247

PATIENT
  Age: 58 Year
  Sex: Male

DRUGS (5)
  1. YERVOY [Suspect]
     Indication: METASTATIC MALIGNANT MELANOMA
     Dosage: THERAPY DT:10SEP12,02OCT12?NO OF DOSES:2
     Route: 042
     Dates: start: 20120910
  2. NEXIUM [Concomitant]
  3. VICODIN [Concomitant]
  4. DEXAMETHASONE [Concomitant]
  5. LEVETIRACETAM [Concomitant]

REACTIONS (2)
  - Malignant neoplasm progression [Fatal]
  - Thrombocytopenia [Unknown]
